FAERS Safety Report 19301730 (Version 2)
Quarter: 2021Q3

REPORT INFORMATION
  Report Type: Other
  Country: BR (occurrence: BR)
  Receive Date: 20210525
  Receipt Date: 20210819
  Transmission Date: 20211014
  Serious: Yes (Other)
  Sender: FDA-Public Use
  Company Number: BR-ROCHE-2832186

PATIENT
  Sex: Female
  Weight: 56 kg

DRUGS (4)
  1. PROMETHAZINE [Concomitant]
     Active Substance: PROMETHAZINE HYDROCHLORIDE
  2. OCREVUS [Suspect]
     Active Substance: OCRELIZUMAB
     Indication: MULTIPLE SCLEROSIS
     Dosage: 300 MG/10 ML
     Route: 042
     Dates: start: 2019
  3. METHYLPREDNISOLONE. [Concomitant]
     Active Substance: METHYLPREDNISOLONE
  4. PARACETAMOL [Concomitant]
     Active Substance: ACETAMINOPHEN

REACTIONS (10)
  - Head injury [Unknown]
  - Pyrexia [Recovered/Resolved]
  - Hypersensitivity [Recovered/Resolved]
  - Anaphylactic shock [Recovered/Resolved]
  - Syncope [Unknown]
  - Pain [Recovered/Resolved]
  - Malaise [Unknown]
  - Somnolence [Recovered/Resolved]
  - Dizziness [Unknown]
  - Spinal disorder [Unknown]

NARRATIVE: CASE EVENT DATE: 2019
